FAERS Safety Report 11397735 (Version 1)
Quarter: 2015Q3

REPORT INFORMATION
  Report Type: Spontaneous
  Country: FR (occurrence: FR)
  Receive Date: 20150819
  Receipt Date: 20150819
  Transmission Date: 20151125
  Serious: Yes (Hospitalization)
  Sender: FDA-Public Use
  Company Number: FR-CONCORDIA PHARMACEUTICALS INC.-CO-KX-FR-2015-009

PATIENT
  Age: 69 Year
  Sex: Male

DRUGS (14)
  1. SPECIAFOLDINE [Concomitant]
     Active Substance: FOLIC ACID
     Dates: start: 20141216
  2. RESIKALI [Suspect]
     Active Substance: CALCIUM POLYSTYRENE SULFONATE
     Indication: PRODUCT USED FOR UNKNOWN INDICATION
     Route: 048
     Dates: start: 20150317
  3. HUMALOG [Concomitant]
     Active Substance: INSULIN LISPRO
     Dates: start: 20150108
  4. KAYEXALATE [Suspect]
     Active Substance: SODIUM POLYSTYRENE SULFONATE
     Indication: PRODUCT USED FOR UNKNOWN INDICATION
     Route: 048
     Dates: start: 20150324
  5. KARDEGIC [Concomitant]
     Active Substance: ASPIRIN LYSINE
     Dates: start: 20141216
  6. NEO MERCAZOLE [Concomitant]
     Active Substance: CARBIMAZOLE
     Dates: start: 20141216
  7. LANTUS SOLOSTAR [Concomitant]
     Active Substance: INSULIN GLARGINE
  8. INEXIUM [Concomitant]
     Active Substance: ESOMEPRAZOLE
     Dates: start: 20141216
  9. AMLOR [Concomitant]
     Active Substance: AMLODIPINE BESYLATE
     Dates: start: 20141216
  10. CALCIDOSE VITAMINE D [Concomitant]
     Active Substance: CALCIUM\CHOLECALCIFEROL
     Dates: start: 20141216
  11. LANTUS SOLOSTAR [Concomitant]
     Active Substance: INSULIN GLARGINE
     Dates: start: 20150108
  12. NICOBION [Concomitant]
     Active Substance: NIACINAMIDE
     Dates: start: 20141216
  13. MECIR [Concomitant]
     Active Substance: TAMSULOSIN HYDROCHLORIDE
     Dates: start: 20141216
  14. PRINCI-B [Concomitant]
     Dates: start: 20141216

REACTIONS (5)
  - Electrocardiogram ST segment depression [Recovered/Resolved]
  - Hypokalaemia [Recovered/Resolved]
  - Acidosis [Recovered/Resolved]
  - General physical health deterioration [Recovered/Resolved]
  - Drug prescribing error [Recovered/Resolved]

NARRATIVE: CASE EVENT DATE: 20150403
